FAERS Safety Report 4694688-8 (Version None)
Quarter: 2005Q2

REPORT INFORMATION
  Report Type: 
  Country: None (occurrence: None)
  Receive Date: 20050620
  Receipt Date: 20050613
  Transmission Date: 20051028
  Serious: Yes (Hospitalization)
  Sender: FDA-Public Use
  Company Number: BE-GLAXOSMITHKLINE-B0384631A

PATIENT
  Age: 27 Year
  Sex: Female

DRUGS (2)
  1. NARAMIG [Suspect]
     Indication: MIGRAINE
     Dosage: 2.5MG PER DAY
     Route: 048
  2. ASPIRIN + CAFFEINE + PARACETAMOL [Concomitant]

REACTIONS (2)
  - HEPATOTOXICITY [None]
  - STEVENS-JOHNSON SYNDROME [None]
